FAERS Safety Report 6072634-2 (Version None)
Quarter: 2009Q1

REPORT INFORMATION
  Report Type: 
  Country: None (occurrence: None)
  Receive Date: 20090210
  Receipt Date: 20090130
  Transmission Date: 20090719
  Serious: Yes (Other)
  Sender: FDA-Public Use
  Company Number: US-WYE-H07296908

PATIENT
  Sex: Female

DRUGS (4)
  1. PREMPRO [Suspect]
     Dosage: UNKNOWN
  2. ESTRACE [Suspect]
     Dosage: UNKNOWN
  3. PROVERA [Suspect]
     Dosage: UNKNOWN
  4. CONJUGATED ESTROGENS [Suspect]

REACTIONS (1)
  - BREAST CANCER METASTATIC [None]
